FAERS Safety Report 9486963 (Version 3)
Quarter: 2013Q4

REPORT INFORMATION
  Report Type: Spontaneous
  Country: DE (occurrence: None)
  Receive Date: 20130925
  Receipt Date: 20131022
  Transmission Date: 20140711
  Serious: Yes (Hospitalization, Other)
  Sender: FDA-Public Use
  Company Number: AUR-APL-2013-06989

PATIENT
  Age: 33 Year
  Sex: Female
  Weight: 58 kg

DRUGS (9)
  1. CARVEDILOL [Suspect]
     Indication: CONGESTIVE CARDIOMYOPATHY
     Dosage: 6.25MG, 1D, ORAL 2009 THERAPY ONGOING
     Route: 048
     Dates: start: 2009
  2. CARVEDILOL [Suspect]
     Indication: CARDIAC FAILURE
     Dosage: 6.25MG, 1D, ORAL 2009 THERAPY ONGOING
     Route: 048
     Dates: start: 2009
  3. INSPRA (EPLERENONE) [Suspect]
     Indication: CONGESTIVE CARDIOMYOPATHY
     Dosage: 25MG, 1D ORAL
     Route: 048
     Dates: start: 2009, end: 20130704
  4. INSPRA (EPLERENONE) [Suspect]
     Indication: CARDIAC FAILURE
     Dosage: 25MG, 1D ORAL
     Route: 048
     Dates: start: 2009, end: 20130704
  5. ENALAPRIL [Suspect]
     Indication: CONGESTIVE CARDIOMYOPATHY
     Dosage: 20 MG
     Route: 048
     Dates: start: 2009, end: 20130704
  6. ENALAPRIL [Suspect]
     Indication: CARDIAC FAILURE
     Dosage: 20 MG
     Route: 048
     Dates: start: 2009, end: 20130704
  7. MARCUMAR (PHENPROCOUMON) [Suspect]
     Indication: CONGESTIVE CARDIOMYOPATHY
     Route: 048
     Dates: start: 2009, end: 20130704
  8. MARCUMAR (PHENPROCOUMON) [Suspect]
     Indication: CARDIAC FAILURE
     Route: 048
     Dates: start: 2009, end: 20130704
  9. CLEXANE [Concomitant]

REACTIONS (3)
  - Pregnancy [None]
  - Abortion spontaneous [None]
  - Maternal exposure during pregnancy [None]
